FAERS Safety Report 5583789-8 (Version None)
Quarter: 2008Q1

REPORT INFORMATION
  Report Type: 
  Country: None (occurrence: None)
  Receive Date: 20080108
  Receipt Date: 20071218
  Transmission Date: 20080703
  Serious: Yes (Hospitalization, Other)
  Sender: FDA-Public Use
  Company Number: FR-BRISTOL-MYERS SQUIBB COMPANY-14023592

PATIENT
  Age: 1 Day
  Sex: Female
  Weight: 2 kg

DRUGS (2)
  1. GLUCOPHAGE [Suspect]
     Indication: TYPE 2 DIABETES MELLITUS
     Route: 064
     Dates: end: 20060518
  2. AVONEX [Suspect]
     Indication: MULTIPLE SCLEROSIS
     Dosage: 30 MICROGRAMS/0.5 ML.
     Route: 064
     Dates: end: 20060517

REACTIONS (12)
  - AMNIOCENTESIS ABNORMAL [None]
  - DEHYDRATION [None]
  - DRUG EXPOSURE DURING PREGNANCY [None]
  - FOETAL GROWTH RETARDATION [None]
  - MACROSOMIA [None]
  - POLYCYTHAEMIA [None]
  - PREGNANCY [None]
  - PREMATURE BABY [None]
  - RENAL FAILURE [None]
  - SINGLE UMBILICAL ARTERY [None]
  - THROMBOCYTOPENIA [None]
  - VERTICAL INFECTION TRANSMISSION [None]
